FAERS Safety Report 8321517-3 (Version None)
Quarter: 2012Q2

REPORT INFORMATION
  Report Type: 
  Country: None (occurrence: None)
  Receive Date: 20120430
  Receipt Date: 20120430
  Transmission Date: 20120825
  Serious: No
  Sender: FDA-Public Use
  Company Number: None

PATIENT
  Age: 24 Year
  Sex: Female
  Weight: 54.431 kg

DRUGS (2)
  1. AMPHETAMINES [Concomitant]
  2. AMPHETAMINES [Suspect]
     Indication: ATTENTION DEFICIT/HYPERACTIVITY DISORDER
     Dosage: 1 10MG PILL
     Route: 048
     Dates: start: 20120426, end: 20120429

REACTIONS (5)
  - HEADACHE [None]
  - VISION BLURRED [None]
  - ABNORMAL SENSATION IN EYE [None]
  - FLUID INTAKE REDUCED [None]
  - PRODUCT SUBSTITUTION ISSUE [None]
